FAERS Safety Report 12447403 (Version 2)
Quarter: 2016Q3

REPORT INFORMATION
  Report Type: Spontaneous
  Country: JP (occurrence: JP)
  Receive Date: 20160608
  Receipt Date: 20160913
  Transmission Date: 20161109
  Serious: Yes (Death)
  Sender: FDA-Public Use
  Company Number: JP-TEVA-664277ISR

PATIENT
  Age: 66 Year
  Sex: Male
  Weight: 55 kg

DRUGS (7)
  1. ELNEOPA NO.1 [Concomitant]
     Indication: MEDICAL PROCEDURE
     Dosage: 1000 ML DAILY;
     Route: 042
  2. ROPION [Concomitant]
     Active Substance: FLURBIPROFEN AXETIL
     Indication: CANCER PAIN
     Route: 042
     Dates: end: 20151029
  3. FIRSTCIN [Concomitant]
     Active Substance: CEFOZOPRAN HYDROCHLORIDE
     Indication: MEDICAL PROCEDURE
     Dosage: 1 GRAM DAILY;
     Route: 042
  4. ELIETEN [Concomitant]
     Active Substance: METOCLOPRAMIDE
     Indication: MEDICAL PROCEDURE
     Dosage: 10 MILLIGRAM DAILY;
     Route: 042
  5. E-FEN BUCCAL [Suspect]
     Active Substance: FENTANYL CITRATE
     Indication: BREAKTHROUGH PAIN
     Dosage: 50 MICROGRAM DAILY;
     Route: 002
     Dates: start: 20151101, end: 20151102
  6. OMEPRAZOLE. [Concomitant]
     Active Substance: OMEPRAZOLE
     Indication: MEDICAL PROCEDURE
     Dosage: 20 MILLIGRAM DAILY;
     Route: 042
  7. DUROTEP [Concomitant]
     Active Substance: FENTANYL
     Indication: CANCER PAIN
     Dosage: 2.1 MILLIGRAM DAILY;
     Route: 062

REACTIONS (1)
  - Colorectal cancer [Fatal]

NARRATIVE: CASE EVENT DATE: 20151107
